FAERS Safety Report 24034651 (Version 8)
Quarter: 2025Q1

REPORT INFORMATION
  Report Type: Report from Study
  Country: US (occurrence: US)
  Receive Date: 20240701
  Receipt Date: 20250311
  Transmission Date: 20250409
  Serious: Yes (Hospitalization, Other)
  Sender: INSMED
  Company Number: US-INSMED-2022-02555-USAA

PATIENT
  Sex: Male

DRUGS (11)
  1. ARIKAYCE [Suspect]
     Active Substance: AMIKACIN
     Indication: Mycobacterium avium complex infection
     Dosage: 590 MILLIGRAM, QD
     Route: 055
     Dates: start: 20220928, end: 2022
  2. ARIKAYCE [Suspect]
     Active Substance: AMIKACIN
     Dosage: 590 MILLIGRAM, QD
     Route: 055
     Dates: start: 2022, end: 2022
  3. ARIKAYCE [Suspect]
     Active Substance: AMIKACIN
     Dosage: 590 MILLIGRAM, QD
     Route: 055
     Dates: start: 2022, end: 202211
  4. ARIKAYCE [Suspect]
     Active Substance: AMIKACIN
     Dosage: 590 MILLIGRAM, QD
     Route: 055
     Dates: start: 2022
  5. ARIKAYCE [Suspect]
     Active Substance: AMIKACIN
     Dosage: 590 MILLIGRAM, QD
     Route: 055
  6. ARIKAYCE [Suspect]
     Active Substance: AMIKACIN
     Route: 055
     Dates: start: 20230208, end: 202302
  7. ARIKAYCE [Suspect]
     Active Substance: AMIKACIN
     Route: 055
  8. ARIKAYCE [Suspect]
     Active Substance: AMIKACIN
     Dosage: 590 MILLIGRAM, QD
     Route: 055
     Dates: start: 20240304, end: 20240516
  9. ARIKAYCE [Suspect]
     Active Substance: AMIKACIN
     Route: 055
     Dates: start: 2024, end: 2024
  10. ARIKAYCE [Suspect]
     Active Substance: AMIKACIN
     Route: 055
     Dates: start: 20241010, end: 202411
  11. ALBUTEROL [Concomitant]
     Active Substance: ALBUTEROL
     Indication: Product used for unknown indication
     Route: 065

REACTIONS (31)
  - Hospitalisation [Unknown]
  - Skin ulcer [Recovering/Resolving]
  - Cardiac pacemaker insertion [Unknown]
  - Gallbladder disorder [Unknown]
  - Abdominal pain upper [Unknown]
  - Pneumonia [Unknown]
  - Pseudomonas infection [Unknown]
  - Sinusitis [Not Recovered/Not Resolved]
  - Secretion discharge [Unknown]
  - Sinusitis fungal [Recovering/Resolving]
  - Walking aid user [Unknown]
  - Loss of personal independence in daily activities [Unknown]
  - COVID-19 [Recovered/Resolved]
  - Fungal infection [Unknown]
  - Throat tightness [Unknown]
  - Laryngitis [Recovered/Resolved]
  - Aphonia [Not Recovered/Not Resolved]
  - Aphonia [Recovered/Resolved]
  - General physical health deterioration [Not Recovered/Not Resolved]
  - Biopsy [Unknown]
  - Laryngitis [Recovering/Resolving]
  - Dysphonia [Unknown]
  - Malaise [Not Recovered/Not Resolved]
  - Wheezing [Unknown]
  - Cough [Unknown]
  - Bronchoscopy [Unknown]
  - Productive cough [Not Recovered/Not Resolved]
  - Drug ineffective [Unknown]
  - Off label use [Unknown]
  - Product dose omission issue [Unknown]
  - Therapy interrupted [Unknown]

NARRATIVE: CASE EVENT DATE: 20220101
